FAERS Safety Report 12565923 (Version 1)
Quarter: 2016Q3

REPORT INFORMATION
  Report Type: Spontaneous
  Country: US (occurrence: US)
  Receive Date: 20160718
  Receipt Date: 20160718
  Transmission Date: 20161109
  Serious: Yes (Hospitalization, Other)
  Sender: FDA-Public Use
  Company Number: US-JAZZ-2016-US-013155

PATIENT
  Sex: Female

DRUGS (2)
  1. FAZACLO [Suspect]
     Active Substance: CLOZAPINE
     Dosage: 100 MG, QD AT BEDTIME
     Route: 048
  2. FAZACLO [Suspect]
     Active Substance: CLOZAPINE
     Indication: BIPOLAR DISORDER
     Dosage: 50 MG, QD IN THE MORNING
     Route: 048

REACTIONS (2)
  - Pneumonia [Not Recovered/Not Resolved]
  - Lung neoplasm malignant [Unknown]
